FAERS Safety Report 11268351 (Version 2)
Quarter: 2015Q3

REPORT INFORMATION
  Report Type: Spontaneous
  Country: US (occurrence: US)
  Receive Date: 20150714
  Receipt Date: 20150911
  Transmission Date: 20151125
  Serious: Yes (Hospitalization)
  Sender: FDA-Public Use
  Company Number: US-JNJFOC-20150703558

PATIENT
  Age: 73 Year
  Sex: Female

DRUGS (15)
  1. NITROGLYCERIN. [Concomitant]
     Active Substance: NITROGLYCERIN
     Route: 060
  2. PROTONIX [Concomitant]
     Active Substance: PANTOPRAZOLE SODIUM
     Route: 048
  3. LEVOFLOXACIN. [Concomitant]
     Active Substance: LEVOFLOXACIN
     Route: 048
  4. COMBIVENT [Concomitant]
     Active Substance: ALBUTEROL SULFATE\IPRATROPIUM BROMIDE
     Route: 065
  5. AMBIEN [Concomitant]
     Active Substance: ZOLPIDEM TARTRATE
     Route: 048
  6. LEVEMIR [Concomitant]
     Active Substance: INSULIN DETEMIR
     Indication: DIABETES MELLITUS
     Route: 065
  7. XARELTO [Suspect]
     Active Substance: RIVAROXABAN
     Indication: ANTICOAGULANT THERAPY
     Route: 048
     Dates: start: 2014, end: 20140813
  8. HEPARIN [Suspect]
     Active Substance: HEPARIN SODIUM
     Indication: PRODUCT USED FOR UNKNOWN INDICATION
     Route: 065
  9. PREDNISONE. [Concomitant]
     Active Substance: PREDNISONE
     Route: 048
  10. ASPIRIN. [Suspect]
     Active Substance: ASPIRIN
     Indication: PRODUCT USED FOR UNKNOWN INDICATION
     Route: 065
  11. ATIVAN [Concomitant]
     Active Substance: LORAZEPAM
     Route: 048
  12. DILTIAZEM [Concomitant]
     Active Substance: DILTIAZEM
     Route: 048
  13. PULMICORT TURBUHALER [Concomitant]
     Active Substance: BUDESONIDE
     Route: 055
  14. XARELTO [Suspect]
     Active Substance: RIVAROXABAN
     Indication: ANTICOAGULANT THERAPY
     Route: 048
     Dates: start: 201403, end: 201407
  15. PERCOCET [Concomitant]
     Active Substance: ACETAMINOPHEN\OXYCODONE HYDROCHLORIDE
     Indication: PAIN
     Route: 048

REACTIONS (4)
  - Haemorrhagic arteriovenous malformation [Recovered/Resolved]
  - Large intestinal haemorrhage [Recovered/Resolved]
  - Diverticulum intestinal haemorrhagic [Recovered/Resolved]
  - Haemorrhagic anaemia [Unknown]

NARRATIVE: CASE EVENT DATE: 20140404
